FAERS Safety Report 9770464 (Version 2)
Quarter: 2014Q2

REPORT INFORMATION
  Report Type: Spontaneous
  Country: US (occurrence: US)
  Receive Date: 20131218
  Receipt Date: 20140519
  Transmission Date: 20141212
  Serious: No
  Sender: FDA-Public Use
  Company Number: US-BIOGENIDEC-2013BI115582

PATIENT
  Age: 53 Year
  Sex: Female

DRUGS (5)
  1. TECFIDERA [Suspect]
     Indication: RELAPSING-REMITTING MULTIPLE SCLEROSIS
     Route: 048
     Dates: start: 201310
  2. TECFIDERA [Suspect]
     Indication: RELAPSING-REMITTING MULTIPLE SCLEROSIS
     Dates: start: 20131013
  3. TREXIMET [Concomitant]
  4. VALIUM [Concomitant]
  5. VICODIN [Concomitant]

REACTIONS (13)
  - Multiple sclerosis [Not Recovered/Not Resolved]
  - Dysgeusia [Unknown]
  - Visual impairment [Unknown]
  - Head discomfort [Not Recovered/Not Resolved]
  - Abdominal distension [Unknown]
  - Altered visual depth perception [Not Recovered/Not Resolved]
  - Metamorphopsia [Not Recovered/Not Resolved]
  - Dizziness [Unknown]
  - Pruritus [Unknown]
  - Rash [Recovered/Resolved]
  - Flushing [Unknown]
  - Abdominal discomfort [Unknown]
  - Diarrhoea [Not Recovered/Not Resolved]
